FAERS Safety Report 4346403-5 (Version None)
Quarter: 2004Q1

REPORT INFORMATION
  Report Type: 
  Country: None (occurrence: None)
  Receive Date: 20040325
  Receipt Date: 20040203
  Transmission Date: 20041129
  Serious: No
  Sender: FDA-Public Use
  Company Number: USA040258273

PATIENT
  Age: 60 Year
  Sex: Female
  Weight: 34 kg

DRUGS (7)
  1. FORTEO [Suspect]
     Indication: FOOT FRACTURE
     Dosage: 20 UG/1 DAY
     Dates: start: 20040130
  2. FORTEO [Suspect]
     Indication: OSTEOPOROSIS
     Dosage: 20 UG/1 DAY
     Dates: start: 20040130
  3. TAMOXIFEN CITRATE [Concomitant]
  4. TRAZADONE (TRAZODONE) [Concomitant]
  5. VALIUM [Concomitant]
  6. MULTIVITAMIN [Concomitant]
  7. CALCIUM [Concomitant]

REACTIONS (2)
  - DIZZINESS [None]
  - PAIN IN EXTREMITY [None]
